FAERS Safety Report 7573275-8 (Version None)
Quarter: 2011Q2

REPORT INFORMATION
  Report Type: 
  Country: None (occurrence: None)
  Receive Date: 20110627
  Receipt Date: 20110613
  Transmission Date: 20111010
  Serious: Yes (Hospitalization)
  Sender: FDA-Public Use
  Company Number: PHHY2011US52225

PATIENT
  Sex: Male

DRUGS (5)
  1. VITAMIN TAB [Concomitant]
     Dosage: UNK
  2. EXELON [Suspect]
     Indication: AMNESIA
     Dosage: 2 PATCHES (4.6 MG) PER DAY
     Route: 062
  3. LIPITOR [Concomitant]
     Dosage: UNK
  4. FLOMAX [Concomitant]
     Dosage: UNK
  5. NORVASC [Concomitant]
     Dosage: UNK

REACTIONS (4)
  - WRONG TECHNIQUE IN DRUG USAGE PROCESS [None]
  - FEELING ABNORMAL [None]
  - DIZZINESS [None]
  - SOMNOLENCE [None]
